FAERS Safety Report 9239702 (Version 2)
Quarter: 2013Q2

REPORT INFORMATION
  Report Type: Spontaneous
  Country: US (occurrence: US)
  Receive Date: 20130418
  Receipt Date: 20130523
  Transmission Date: 20140414
  Serious: No
  Sender: FDA-Public Use
  Company Number: US-PFIZER INC-2013117927

PATIENT
  Age: 59 Year
  Sex: Female
  Weight: 72.56 kg

DRUGS (8)
  1. CALTRATE WITH VITAMIN D [Suspect]
     Indication: BONE DISORDER
     Dosage: UNK, 2X/DAY
  2. LORATADINE [Suspect]
     Indication: HYPERSENSITIVITY
     Dosage: UNK
     Dates: start: 201303, end: 201303
  3. PREDNISONE [Suspect]
     Indication: HYPERSENSITIVITY
     Dosage: 20 MG, 3X/DAY
     Dates: start: 201303
  4. PREDNISONE [Suspect]
     Dosage: 20 MG, 2X/DAY
  5. PREDNISONE [Suspect]
     Dosage: 20 MG, 1X/DAY
  6. SIMVASTATIN [Suspect]
     Indication: BLOOD CHOLESTEROL INCREASED
     Dosage: 40 MG, 1X/DAY
     Dates: start: 2012
  7. SIMVASTATIN [Suspect]
     Dosage: 40 MG, 1X/DAY
     Dates: start: 20130210, end: 201303
  8. ALLEGRA [Suspect]
     Indication: HYPERSENSITIVITY
     Dosage: UNK
     Dates: start: 201303, end: 201303

REACTIONS (5)
  - Drug prescribing error [Unknown]
  - Drug ineffective [Unknown]
  - Hypersensitivity [Unknown]
  - Acne [Unknown]
  - Food allergy [Unknown]
